FAERS Safety Report 9848342 (Version 2)
Quarter: 2014Q1

REPORT INFORMATION
  Report Type: Spontaneous
  Country: IT (occurrence: IT)
  Receive Date: 20140128
  Receipt Date: 20140210
  Transmission Date: 20141002
  Serious: Yes (Hospitalization)
  Sender: FDA-Public Use
  Company Number: IT-RANBAXY-2014RR-77489

PATIENT
  Age: 35 Year
  Sex: Male

DRUGS (4)
  1. PARACETAMOL [Suspect]
     Indication: PAIN
     Dosage: 1 G  COMPLETE
     Route: 048
     Dates: start: 20131125, end: 20131125
  2. VOLTAREN [Suspect]
     Indication: BACK PAIN
     Dosage: 1 DF COMPLETE
     Route: 030
     Dates: start: 20131125, end: 20131125
  3. MUSCORIL [Suspect]
     Indication: BACK PAIN
     Dosage: 1 DF COMPLETE
     Route: 030
     Dates: start: 20131125, end: 20131125
  4. SOLDESAM [Suspect]
     Indication: BACK PAIN
     Dosage: 4 MG COMPLETE
     Route: 030
     Dates: start: 20131125, end: 20131125

REACTIONS (3)
  - Nausea [Recovered/Resolved]
  - Vertigo [Recovered/Resolved]
  - Somnolence [Recovered/Resolved]
